FAERS Safety Report 6487446-5 (Version None)
Quarter: 2009Q4

REPORT INFORMATION
  Report Type: 
  Country: None (occurrence: None)
  Receive Date: 20091210
  Receipt Date: 20091202
  Transmission Date: 20100525
  Serious: Yes (Congenital Anomaly)
  Sender: FDA-Public Use
  Company Number: GXKR2009GB13056

PATIENT
  Sex: Female

DRUGS (4)
  1. LAMOTRIGINE (NGX) [Suspect]
     Route: 064
  2. LEVETIRACETAM [Suspect]
     Route: 064
  3. FOLIC ACID [Concomitant]
     Route: 064
  4. LABETALOL HCL [Concomitant]
     Indication: PRE-ECLAMPSIA
     Route: 064

REACTIONS (4)
  - CENTRAL NERVOUS SYSTEM LESION [None]
  - DRUG EXPOSURE DURING PREGNANCY [None]
  - EXOMPHALOS [None]
  - SURGERY [None]
